FAERS Safety Report 18047947 (Version 1)
Quarter: 2020Q3

REPORT INFORMATION
  Report Type: Spontaneous
  Country: US (occurrence: US)
  Receive Date: 20200720
  Receipt Date: 20200720
  Transmission Date: 20201103
  Serious: Yes (Hospitalization)
  Sender: FDA-Public Use
  Company Number: None

PATIENT
  Sex: Female

DRUGS (3)
  1. LEFLUNOMIDE. [Concomitant]
     Active Substance: LEFLUNOMIDE
  2. PREDNISONE. [Concomitant]
     Active Substance: PREDNISONE
  3. ENTECAVIR 0.5MG [Suspect]
     Active Substance: ENTECAVIR
     Indication: IMMUNE SYSTEM DISORDER
     Route: 048
     Dates: start: 20200519

REACTIONS (4)
  - Hyperhidrosis [None]
  - Headache [None]
  - Pollakiuria [None]
  - Back disorder [None]
